FAERS Safety Report 20945583 (Version 1)
Quarter: 2022Q2

REPORT INFORMATION
  Report Type: Spontaneous
  Country: AU (occurrence: None)
  Receive Date: 20220610
  Receipt Date: 20220610
  Transmission Date: 20220721
  Serious: Yes (Hospitalization, Other)
  Sender: FDA-Public Use
  Company Number: AU-Merck Healthcare KGaA-9327674

PATIENT
  Age: 78 Year

DRUGS (1)
  1. AVELUMAB [Suspect]
     Active Substance: AVELUMAB
     Indication: Neuroendocrine carcinoma of the skin

REACTIONS (3)
  - Atrial fibrillation [Recovering/Resolving]
  - Humerus fracture [Recovering/Resolving]
  - Chorea [Recovering/Resolving]

NARRATIVE: CASE EVENT DATE: 20220501
